FAERS Safety Report 6530124-4 (Version None)
Quarter: 2010Q1

REPORT INFORMATION
  Report Type: 
  Country: None (occurrence: None)
  Receive Date: 20100107
  Receipt Date: 20091222
  Transmission Date: 20100710
  Serious: Yes (Other)
  Sender: FDA-Public Use
  Company Number: JP-ROCHE-674760

PATIENT
  Sex: Male
  Weight: 22 kg

DRUGS (3)
  1. TAMIFLU [Suspect]
     Indication: INFLUENZA
     Dosage: DRUG NAME: TAMIFLU DRY SYRUP 3%(OSELTAMIVIR)
     Route: 048
     Dates: start: 20091128, end: 20091128
  2. TAMIFLU [Suspect]
     Route: 048
     Dates: start: 20091129, end: 20091129
  3. TAMIFLU [Suspect]
     Route: 048
     Dates: start: 20091130, end: 20091130

REACTIONS (1)
  - ABNORMAL BEHAVIOUR [None]
